FAERS Safety Report 18454217 (Version 2)
Quarter: 2020Q4

REPORT INFORMATION
  Report Type: Report from Study
  Country: CA (occurrence: CA)
  Receive Date: 20201102
  Receipt Date: 20201120
  Transmission Date: 20210114
  Serious: Yes (Other)
  Sender: FDA-Public Use
  Company Number: CA-JNJFOC-20201042722

PATIENT
  Sex: Female

DRUGS (1)
  1. REMICADE [Suspect]
     Active Substance: INFLIXIMAB
     Indication: RHEUMATOID ARTHRITIS
     Dosage: ON 12-NOV-2020, THE PATIENT RECEIVE 86TH INFUSION OF 300 MG DOSE
     Route: 042
     Dates: start: 20091229

REACTIONS (1)
  - Basal cell carcinoma [Recovering/Resolving]
